FAERS Safety Report 25771148 (Version 1)
Quarter: 2025Q3

REPORT INFORMATION
  Report Type: Spontaneous
  Country: US (occurrence: US)
  Receive Date: 20250908
  Receipt Date: 20250908
  Transmission Date: 20251020
  Serious: No
  Sender: DOMPE FARMACEUTICI
  Company Number: US-FARMAPROD-202503-1049

PATIENT
  Sex: Female

DRUGS (10)
  1. OXERVATE [Suspect]
     Active Substance: CENEGERMIN-BKBJ
     Indication: Neurotrophic keratopathy
     Route: 047
     Dates: start: 20250310
  2. BIOTIN [Concomitant]
     Active Substance: BIOTIN
  3. DIETARY SUPPLEMENT [Concomitant]
     Active Substance: DIETARY SUPPLEMENT
  4. FISH OIL [Concomitant]
     Active Substance: FISH OIL
  5. VITAMIN D3 [Concomitant]
     Active Substance: CHOLECALCIFEROL
  6. VITAMIN E-100 [Concomitant]
  7. DIETARY SUPPLEMENT\UBIDECARENONE [Concomitant]
     Active Substance: DIETARY SUPPLEMENT\UBIDECARENONE
  8. CHONDROITIN SULFATE (BOVINE) [Concomitant]
     Active Substance: CHONDROITIN SULFATE (BOVINE)
  9. CALCIUM CITRATE [Concomitant]
     Active Substance: CALCIUM CITRATE
  10. TEMAZEPAM [Concomitant]
     Active Substance: TEMAZEPAM

REACTIONS (12)
  - Eye swelling [Unknown]
  - Eye pain [Unknown]
  - Photophobia [Unknown]
  - Somnolence [Unknown]
  - Headache [Unknown]
  - Asthenia [Unknown]
  - Ocular discomfort [Unknown]
  - Dizziness [Unknown]
  - Asthenia [Unknown]
  - Cough [Unknown]
  - Lower respiratory tract infection [Unknown]
  - Influenza [Unknown]
